FAERS Safety Report 23445059 (Version 3)
Quarter: 2024Q2

REPORT INFORMATION
  Report Type: Report from Study
  Country: US (occurrence: US)
  Receive Date: 20240125
  Receipt Date: 20240424
  Transmission Date: 20240716
  Serious: Yes (Other)
  Sender: FDA-Public Use
  Company Number: US-ABBVIE-5319603

PATIENT
  Sex: Male

DRUGS (2)
  1. SKYRIZI [Suspect]
     Active Substance: RISANKIZUMAB-RZAA
     Indication: Psoriasis
     Dosage: EVERY 12 WEEKS?FORM STRENGTH: 150 MILLIGRAM
     Route: 058
     Dates: start: 20230613
  2. SKYRIZI [Suspect]
     Active Substance: RISANKIZUMAB-RZAA
     Indication: Psoriasis
     Route: 058

REACTIONS (9)
  - Hip arthroplasty [Unknown]
  - Chronic obstructive pulmonary disease [Unknown]
  - Coronary arterial stent insertion [Unknown]
  - Hypoaesthesia [Unknown]
  - Localised infection [Unknown]
  - Skin disorder [Unknown]
  - Purulent discharge [Unknown]
  - Wound haemorrhage [Unknown]
  - Wound complication [Unknown]

NARRATIVE: CASE EVENT DATE: 20230101
